FAERS Safety Report 17378806 (Version 1)
Quarter: 2020Q1

REPORT INFORMATION
  Report Type: Spontaneous
  Country: US (occurrence: US)
  Receive Date: 20200205
  Receipt Date: 20200205
  Transmission Date: 20200409
  Serious: No
  Sender: FDA-Public Use
  Company Number: None

PATIENT
  Age: 50 Year
  Sex: Female
  Weight: 57.6 kg

DRUGS (4)
  1. SIMILASAN COMPUTER EYE RELIEF [Suspect]
     Active Substance: HOMEOPATHICS
     Indication: EYE INFLAMMATION
     Dosage: ?          QUANTITY:2 DROP(S);?
     Route: 047
     Dates: start: 20191201, end: 20200205
  2. SIMILASAN COMPUTER EYE RELIEF [Suspect]
     Active Substance: HOMEOPATHICS
     Indication: VISION BLURRED
     Dosage: ?          QUANTITY:2 DROP(S);?
     Route: 047
     Dates: start: 20191201, end: 20200205
  3. SIMILASAN COMPUTER EYE RELIEF [Suspect]
     Active Substance: HOMEOPATHICS
     Indication: EYE IRRITATION
     Dosage: ?          QUANTITY:2 DROP(S);?
     Route: 047
     Dates: start: 20191201, end: 20200205
  4. SIMILASAN COMPUTER EYE RELIEF [Suspect]
     Active Substance: HOMEOPATHICS
     Indication: DRY EYE
     Dosage: ?          QUANTITY:2 DROP(S);?
     Route: 047
     Dates: start: 20191201, end: 20200205

REACTIONS (5)
  - Eye disorder [None]
  - Instillation site discolouration [None]
  - Reaction to preservatives [None]
  - Ocular discomfort [None]
  - Instillation site pain [None]

NARRATIVE: CASE EVENT DATE: 20200203
